FAERS Safety Report 5040853-X (Version None)
Quarter: 2006Q2

REPORT INFORMATION
  Report Type: 
  Country: None (occurrence: None)
  Receive Date: 20060601
  Receipt Date: 20060303
  Transmission Date: 20061013
  Serious: No
  Sender: FDA-Public Use
  Company Number: 2006PV009635

PATIENT
  Age: 50 Year
  Sex: Male
  Weight: 73.9363 kg

DRUGS (4)
  1. BYETTA [Suspect]
     Indication: DIABETES MELLITUS NON-INSULIN-DEPENDENT
     Dosage: 5 MCG;QD;SC
     Route: 058
     Dates: start: 20060106
  2. GLUCOPHAGE XR [Concomitant]
  3. ACTOS [Concomitant]
  4. PRILOSEC [Concomitant]

REACTIONS (3)
  - FEELING COLD [None]
  - NAUSEA [None]
  - VOMITING [None]
